FAERS Safety Report 11902319 (Version 4)
Quarter: 2016Q1

REPORT INFORMATION
  Report Type: Report from Study
  Country: US (occurrence: US)
  Receive Date: 20160108
  Receipt Date: 20160111
  Transmission Date: 20160526
  Serious: No
  Sender: FDA-Public Use
  Company Number: US-ABBVIE-15P-163-1461226-00

PATIENT
  Sex: Male
  Weight: 138.02 kg

DRUGS (1)
  1. VIEKIRA PAK [Suspect]
     Active Substance: DASABUVIR\OMBITASVIR\PARITAPREVIR\RITONAVIR
     Indication: CHRONIC HEPATITIS C
     Dosage: EVERY MORNING AND EVENING
     Route: 048
     Dates: start: 201508

REACTIONS (3)
  - Photophobia [Unknown]
  - Nausea [Recovered/Resolved]
  - Lacrimation increased [Unknown]
